FAERS Safety Report 10085940 (Version 2)
Quarter: 2014Q2

REPORT INFORMATION
  Report Type: Spontaneous
  Country: AU (occurrence: None)
  Receive Date: 20140403
  Receipt Date: 20140423
  Transmission Date: 20141212
  Serious: Yes (Hospitalization)
  Sender: FDA-Public Use
  Company Number: GAM-107-14-AU

PATIENT
  Age: 72 Year
  Sex: Male

DRUGS (4)
  1. OCTAGAM [Suspect]
     Indication: CHRONIC INFLAMMATORY DEMYELINATING POLYRADICULONEUROPATHY
     Dosage: 40 G (1X 1 CYCLICAL) INTRAVENOUS (NOT OTHERWISE SPECIFIED)?
     Route: 042
     Dates: start: 20140227, end: 20140227
  2. ALLOPURINOL [Concomitant]
  3. FISH OIL [Concomitant]
  4. PARACETAMOL [Concomitant]

REACTIONS (3)
  - Infusion site rash [None]
  - Deep vein thrombosis [None]
  - Rash [None]
